FAERS Safety Report 5123613-0 (Version None)
Quarter: 2006Q4

REPORT INFORMATION
  Report Type: 
  Country: None (occurrence: None)
  Receive Date: 20060910
  Receipt Date: 20050713
  Transmission Date: 20070319
  Serious: Yes (Hospitalization, Other)
  Sender: FDA-Public Use
  Company Number: US_001051832

PATIENT
  Age: 31 Year
  Sex: Female
  Weight: 62.7 kg

DRUGS (9)
  1. HUMALOG [Suspect]
     Indication: DIABETES MELLITUS
     Dosage: AS NEEDED, SUBCUTANEOUS
     Route: 058
     Dates: start: 19960101
  2. HUMULIN U [Suspect]
     Indication: DIABETES MELLITUS
     Dosage: 2/D, SUBCUTANEOUS
     Route: 058
     Dates: start: 19900101
  3. HUMULIN L [Suspect]
     Indication: DIABETES MELLITUS
     Dosage: 18 U, EACH MORNING, SUBCUTANEOUS
     Route: 058
     Dates: start: 19890101, end: 19980101
  4. HUMULIN R [Suspect]
     Indication: DIABETES MELLITUS
     Dates: end: 19980101
  5. NPH ILETIN II (PORK) [Suspect]
     Indication: DIABETES MELLITUS
     Dosage: 20 U, 2/D, SUBCUTANEOUS
     Route: 058
     Dates: start: 19760101, end: 19830101
  6. LENTE INSULIN BEEF [Suspect]
     Indication: DIABETES MELLITUS
     Dosage: 20 U, 2/D, SUBCUTANEOUS
     Route: 058
     Dates: start: 19830101, end: 19890101
  7. REGULAR INSULIN, BEEF [Suspect]
     Indication: DIABETES MELLITUS
     Dates: start: 19760101
  8. NPH INSULIN, BEEF [Suspect]
     Indication: DIABETES MELLITUS
     Dates: start: 19760101
  9. LENTE ILETIN II (PORK) [Suspect]
     Indication: DIABETES MELLITUS

REACTIONS (6)
  - DRUG INEFFECTIVE [None]
  - HYPERGLYCAEMIA [None]
  - HYPOGLYCAEMIA [None]
  - INJECTION SITE MASS [None]
  - KETOACIDOSIS [None]
  - RASH [None]
